FAERS Safety Report 4845742-9 (Version None)
Quarter: 2005Q4

REPORT INFORMATION
  Report Type: 
  Country: None (occurrence: None)
  Receive Date: 20051205
  Receipt Date: 20051205
  Transmission Date: 20060501
  Serious: Yes (Other)
  Sender: FDA-Public Use
  Company Number: None

PATIENT
  Age: 69 Year
  Sex: Male
  Weight: 68.9467 kg

DRUGS (8)
  1. CISPLATIN [Suspect]
     Indication: METASTATIC GASTRIC CANCER
     Dosage: 25 MG/M2 DAYS 1 + 8 IV
     Route: 042
     Dates: start: 20051025
  2. IRINOTECAN HCL [Suspect]
     Indication: METASTATIC GASTRIC CANCER
     Dosage: 55.25 MG/M2 DAYS 1 + 8 IV
     Route: 042
     Dates: start: 20051025
  3. FLUOROURACIL [Suspect]
     Indication: METASTATIC GASTRIC CANCER
     Dosage: 260 MG/M2 DAYS 1-14 IV
     Route: 041
     Dates: start: 20051025
  4. COMPAZINE [Concomitant]
  5. INSULIN [Concomitant]
  6. ATIVAN [Concomitant]
  7. ZOFRAN [Concomitant]
  8. MEGACE [Concomitant]

REACTIONS (1)
  - PULMONARY EMBOLISM [None]
